FAERS Safety Report 5235251-X (Version None)
Quarter: 2007Q1

REPORT INFORMATION
  Report Type: 
  Country: None (occurrence: None)
  Receive Date: 20070212
  Receipt Date: 20070207
  Transmission Date: 20070707
  Serious: Yes (Hospitalization, Other)
  Sender: FDA-Public Use
  Company Number: US-ELI_LILLY_AND_COMPANY-US200602002463

PATIENT
  Age: 27 Year
  Sex: Male
  Weight: 137 kg

DRUGS (21)
  1. RISPERDAL                               /SWE/ [Concomitant]
     Dosage: 2 MG, DAILY (1/D)
     Dates: start: 20010608, end: 20010613
  2. RISPERDAL                               /SWE/ [Concomitant]
     Dosage: 4 MG, EACH EVENING
     Dates: start: 20010613
  3. GEODON [Concomitant]
     Dates: start: 20020101
  4. DEPAKOTE [Concomitant]
     Dates: start: 20030101
  5. LOPRESSOR [Concomitant]
     Dates: start: 20050101
  6. VALIUM [Concomitant]
     Dosage: 5 MG, EACH EVENING
     Dates: start: 20000601
  7. PAXIL [Concomitant]
     Dosage: 20 MG, DAILY (1/D)
     Dates: start: 20000622, end: 20000928
  8. PAXIL [Concomitant]
     Dosage: 40 MG, DAILY (1/D)
     Dates: start: 20000928, end: 20001005
  9. PAXIL [Concomitant]
     Dosage: 50 MG, DAILY (1/D)
     Dates: start: 20001005, end: 20001207
  10. PAXIL [Concomitant]
     Dosage: 40 MG, DAILY (1/D)
     Dates: start: 20001207, end: 20010216
  11. PAXIL [Concomitant]
     Dosage: 10 MG, DAILY (1/D)
     Dates: start: 20010216
  12. CELEXA [Concomitant]
     Dosage: 20 MG, DAILY (1/D)
     Dates: start: 20010323, end: 20010608
  13. CELEXA [Concomitant]
     Dosage: 40 MG, DAILY (1/D)
     Dates: start: 20010608
  14. ZYPREXA [Suspect]
     Indication: DEPRESSION
     Dosage: 10 MG, DAILY (1/D)
     Route: 048
     Dates: start: 20000616, end: 20000622
  15. ZYPREXA [Suspect]
     Dosage: 15 MG, DAILY (1/D)
     Route: 048
     Dates: start: 20000622, end: 20000706
  16. ZYPREXA [Suspect]
     Dosage: 15 MG, DAILY (1/D)
     Route: 048
     Dates: start: 20010323, end: 20010608
  17. ZYPREXA [Suspect]
     Dosage: 7.5 MG, DAILY (1/D)
     Route: 048
     Dates: start: 20010608, end: 20010601
  18. ZYPREXA [Suspect]
     Dosage: UNK, UNK
     Dates: start: 20000101
  19. ZYPREXA [Suspect]
     Dosage: 40 MG, DAILY (1/D)
     Dates: start: 20010101, end: 20010601
  20. ZYPREXA [Suspect]
     Dosage: 20 MG, EACH EVENING
     Dates: start: 20000706, end: 20010216
  21. ZYPREXA [Suspect]
     Dosage: 10 MG, DAILY (1/D)
     Dates: start: 20010216, end: 20010323

REACTIONS (9)
  - BLOOD CHOLESTEROL INCREASED [None]
  - BLOOD TRIGLYCERIDES INCREASED [None]
  - CEREBROVASCULAR DISORDER [None]
  - DIABETES MELLITUS NON-INSULIN-DEPENDENT [None]
  - HYPERTENSION [None]
  - MYOCARDIAL INFARCTION [None]
  - MYOCARDIAL ISCHAEMIA [None]
  - PRESCRIBED OVERDOSE [None]
  - WEIGHT INCREASED [None]
